FAERS Safety Report 5795950-8 (Version None)
Quarter: 2008Q3

REPORT INFORMATION
  Report Type: 
  Country: None (occurrence: None)
  Receive Date: 20080701
  Receipt Date: 20080626
  Transmission Date: 20090109
  Serious: Yes (Death, Life-Threatening, Hospitalization)
  Sender: FDA-Public Use
  Company Number: US-JNJFOC-20080203036

PATIENT
  Sex: Male
  Weight: 81.65 kg

DRUGS (12)
  1. TMC125 [Suspect]
     Route: 048
  2. TMC125 [Suspect]
     Indication: HIV INFECTION
     Dosage: TREATMENT WAS STOPPED ON THIS DATE AS THIS WAS THE LAST CONTACT WITH THE PATIENT
     Route: 048
  3. NORVIR [Concomitant]
     Indication: HIV INFECTION
     Route: 048
  4. MK-0518 [Concomitant]
     Indication: HIV INFECTION
     Route: 048
  5. TRUVADA [Concomitant]
     Indication: HIV INFECTION
     Dosage: DOSE REPORTED AS 200/300 MG
     Route: 048
  6. PREZISTA [Concomitant]
     Indication: HIV INFECTION
     Route: 048
  7. AZITHROMYCIN [Concomitant]
  8. LEUCOVORIN CALCIUM [Concomitant]
  9. POSACONAZOLE [Concomitant]
  10. ACYCLOVIR SODIUM [Concomitant]
  11. DARAPRIM [Concomitant]
  12. SULFADIAZINE [Concomitant]

REACTIONS (2)
  - CARDIO-RESPIRATORY ARREST [None]
  - PYREXIA [None]
